FAERS Safety Report 5162351-5 (Version None)
Quarter: 2006Q4

REPORT INFORMATION
  Report Type: 
  Country: None (occurrence: None)
  Receive Date: 20061130
  Receipt Date: 20061122
  Transmission Date: 20070319
  Serious: Yes (Disabling)
  Sender: FDA-Public Use
  Company Number: GB-MERCK-0611GBR00140

PATIENT
  Age: 70 Year
  Sex: Female

DRUGS (6)
  1. TIMOPTIC [Suspect]
     Indication: GLAUCOMA
     Route: 047
     Dates: start: 20040524, end: 20060530
  2. LATANOPROST [Suspect]
     Indication: GLAUCOMA
     Route: 047
     Dates: start: 20040524, end: 20060330
  3. ACETAMINOPHEN AND PROPOXYPHENE HYDROCHLORIDE [Concomitant]
     Indication: ARTHRALGIA
     Route: 047
     Dates: start: 19950711, end: 20060703
  4. ESTRADIOL [Concomitant]
     Indication: HEART RATE
     Route: 061
     Dates: start: 19950307
  5. SUMATRIPTAN [Concomitant]
     Indication: MIGRAINE
     Route: 065
     Dates: start: 19970502
  6. TRAMADOL HCL [Concomitant]
     Indication: ARTHRALGIA
     Route: 065
     Dates: start: 20020101

REACTIONS (2)
  - CHEST PAIN [None]
  - DYSPNOEA EXERTIONAL [None]
